FAERS Safety Report 19683278 (Version 2)
Quarter: 2022Q1

REPORT INFORMATION
  Report Type: Other
  Country: CA (occurrence: CA)
  Receive Date: 20210811
  Receipt Date: 20220324
  Transmission Date: 20220423
  Serious: Yes (Other)
  Sender: FDA-Public Use
  Company Number: CA-APOTEX-2021AP028705

PATIENT
  Age: 78 Year
  Sex: Male

DRUGS (13)
  1. AZITHROMYCIN [Suspect]
     Active Substance: AZITHROMYCIN
     Indication: Product used for unknown indication
     Dosage: 1 DOSAGE FORM, BID
     Route: 048
  2. ALBUTEROL [Suspect]
     Active Substance: ALBUTEROL
     Indication: Product used for unknown indication
     Dosage: UNK, BID
     Route: 065
  3. ALBUTEROL [Suspect]
     Active Substance: ALBUTEROL
     Dosage: 2 DOSAGE FORM, QID
     Route: 065
  4. ALBUTEROL [Suspect]
     Active Substance: ALBUTEROL
     Dosage: 2 DOSAGE FORM
     Route: 065
  5. ALBUTEROL [Suspect]
     Active Substance: ALBUTEROL
     Dosage: UNK, TID
     Route: 065
  6. ACLIDINIUM BROMIDE [Suspect]
     Active Substance: ACLIDINIUM BROMIDE
     Indication: Product used for unknown indication
     Dosage: 1 DOSAGE FORM, BID
     Route: 065
  7. ACLIDINIUM BROMIDE [Suspect]
     Active Substance: ACLIDINIUM BROMIDE
     Dosage: 1 DOSAGE FORM, QD
     Route: 065
  8. FLUTICASONE FUROATE [Suspect]
     Active Substance: FLUTICASONE FUROATE
     Indication: Product used for unknown indication
     Dosage: 1 DOSAGE FORM, QD
     Route: 065
  9. CALCIUM CARBONATE\ERGOCALCIFEROL [Suspect]
     Active Substance: CALCIUM CARBONATE\ERGOCALCIFEROL
     Indication: Product used for unknown indication
     Dosage: UNK UNK, QD
     Route: 065
  10. FORMOTEROL FUMARATE\MOMETASONE FUROATE [Suspect]
     Active Substance: FORMOTEROL FUMARATE\MOMETASONE FUROATE
     Indication: Product used for unknown indication
     Dosage: 2 DOSAGE FORM, BID
     Route: 065
  11. NUCALA [Suspect]
     Active Substance: MEPOLIZUMAB
     Indication: Asthma
     Dosage: 100 MILLIGRAM
     Route: 042
  12. UNIPHYL [Suspect]
     Active Substance: THEOPHYLLINE ANHYDROUS
     Indication: Product used for unknown indication
     Dosage: 1 DOSAGE FORM, QD
     Route: 065
  13. ALBUTEROL SULFATE [Suspect]
     Active Substance: ALBUTEROL SULFATE
     Indication: Product used for unknown indication
     Dosage: 2.6 MILLIGRAM, BID
     Route: 065

REACTIONS (22)
  - Dupuytren^s contracture operation [Unknown]
  - Inguinal hernia repair [Unknown]
  - Loss of personal independence in daily activities [Unknown]
  - Sleep disorder due to a general medical condition [Unknown]
  - Chronic obstructive pulmonary disease [Unknown]
  - Lung neoplasm [Unknown]
  - Respiratory disorder [Unknown]
  - Lung diffusion disorder [Unknown]
  - Asthma [Unknown]
  - Dyspnoea [Unknown]
  - Hypercapnia [Unknown]
  - Wheezing [Unknown]
  - Emphysema [Unknown]
  - Stenotrophomonas infection [Unknown]
  - Oropharyngeal candidiasis [Unknown]
  - Fungal disease carrier [Unknown]
  - Pneumonia [Unknown]
  - Insomnia [Unknown]
  - Weight increased [Unknown]
  - Anxiety [Unknown]
  - Hypertension [Unknown]
  - Therapeutic product effect incomplete [Unknown]
